FAERS Safety Report 18775857 (Version 2)
Quarter: 2021Q1

REPORT INFORMATION
  Report Type: Spontaneous
  Country: TR (occurrence: TR)
  Receive Date: 20210122
  Receipt Date: 20210125
  Transmission Date: 20210419
  Serious: Yes (Hospitalization)
  Sender: FDA-Public Use
  Company Number: TR-PFIZER INC-2021026354

PATIENT
  Age: 30 Year
  Sex: Female

DRUGS (2)
  1. METHYLPREDNISOLONE ACETATE. [Suspect]
     Active Substance: METHYLPREDNISOLONE ACETATE
     Indication: SYSTEMIC LUPUS ERYTHEMATOSUS
     Dosage: UNK
  2. METHYLPREDNISOLONE ACETATE. [Suspect]
     Active Substance: METHYLPREDNISOLONE ACETATE
     Indication: IMMUNE THROMBOCYTOPENIA

REACTIONS (6)
  - Septic arthritis staphylococcal [Recovered/Resolved]
  - Osteonecrosis [Recovered/Resolved]
  - Bone infarction [Recovered/Resolved]
  - Bacterial infection [Recovered/Resolved]
  - Staphylococcal sepsis [Recovered/Resolved]
  - Arthritis [Recovered/Resolved]
